FAERS Safety Report 14670547 (Version 1)
Quarter: 2018Q1

REPORT INFORMATION
  Report Type: Spontaneous
  Country: US (occurrence: US)
  Receive Date: 20180322
  Receipt Date: 20180322
  Transmission Date: 20180509
  Serious: No
  Sender: FDA-Public Use
  Company Number: US-VERTEX PHARMACEUTICALS-2018-001582

PATIENT
  Age: 23 Year
  Sex: Female
  Weight: 40.82 kg

DRUGS (1)
  1. SYMDEKO [Suspect]
     Active Substance: IVACAFTOR\TEZACAFTOR
     Indication: CYSTIC FIBROSIS
     Dosage: UNK
     Route: 048
     Dates: start: 201802

REACTIONS (2)
  - Abdominal pain upper [Recovered/Resolved]
  - Frequent bowel movements [Recovered/Resolved]

NARRATIVE: CASE EVENT DATE: 201802
